FAERS Safety Report 10616044 (Version 2)
Quarter: 2015Q1

REPORT INFORMATION
  Report Type: Spontaneous
  Country: GR (occurrence: GR)
  Receive Date: 20141201
  Receipt Date: 20150217
  Transmission Date: 20150720
  Serious: Yes (Hospitalization)
  Sender: FDA-Public Use
  Company Number: GR-SA-2014SA161136

PATIENT
  Age: 79 Year
  Sex: Female

DRUGS (5)
  1. ACCUPRON [Concomitant]
  2. LEXOTANIL [Concomitant]
     Active Substance: BROMAZEPAM
  3. TENORMIN [Concomitant]
     Active Substance: ATENOLOL
  4. LANTUS [Suspect]
     Active Substance: INSULIN GLARGINE
     Route: 065
     Dates: start: 2012
  5. GLUCOPHAGE [Concomitant]
     Active Substance: METFORMIN HYDROCHLORIDE
     Dates: end: 2015

REACTIONS (11)
  - Erythema [Unknown]
  - Syncope [Unknown]
  - Drug hypersensitivity [Unknown]
  - Headache [Unknown]
  - Respiratory tract infection viral [Unknown]
  - Pruritus [Unknown]
  - Diarrhoea [Not Recovered/Not Resolved]
  - Peripheral swelling [Unknown]
  - Blood glucose decreased [Recovered/Resolved]
  - Arthralgia [Unknown]
  - Pain [Unknown]

NARRATIVE: CASE EVENT DATE: 2012
